FAERS Safety Report 17948382 (Version 1)
Quarter: 2020Q2

REPORT INFORMATION
  Report Type: Spontaneous
  Country: US (occurrence: US)
  Receive Date: 20200625
  Receipt Date: 20200625
  Transmission Date: 20200714
  Serious: No
  Sender: FDA-Public Use
  Company Number: US-NOVOPROD-721602

PATIENT
  Age: 58 Year
  Sex: Female

DRUGS (1)
  1. OZEMPIC [Suspect]
     Active Substance: SEMAGLUTIDE
     Indication: DIABETES MELLITUS
     Dosage: 2 MG, QW
     Route: 058
     Dates: start: 201912, end: 20200312

REACTIONS (2)
  - Product use issue [Recovered/Resolved]
  - Gastric disorder [Unknown]
